FAERS Safety Report 23762653 (Version 1)
Quarter: 2024Q2

REPORT INFORMATION
  Report Type: Spontaneous
  Country: US (occurrence: US)
  Receive Date: 20240419
  Receipt Date: 20240419
  Transmission Date: 20240716
  Serious: Yes (Other)
  Sender: FDA-Public Use
  Company Number: US-GILEAD-2024-0669658

PATIENT
  Age: 20 Year
  Sex: Female

DRUGS (2)
  1. STRIBILD [Suspect]
     Active Substance: COBICISTAT\ELVITEGRAVIR\EMTRICITABINE\TENOFOVIR DISOPROXIL FUMARATE
     Indication: HIV infection
     Dosage: UNK
     Route: 065
  2. METHIMAZOLE [Concomitant]
     Active Substance: METHIMAZOLE

REACTIONS (4)
  - Immune reconstitution inflammatory syndrome [Unknown]
  - Graves^ disease [Unknown]
  - Viral load increased [Unknown]
  - Maternal exposure during pregnancy [Recovered/Resolved]
